FAERS Safety Report 18918073 (Version 1)
Quarter: 2021Q1

REPORT INFORMATION
  Report Type: Spontaneous
  Country: PT (occurrence: PT)
  Receive Date: 20210220
  Receipt Date: 20210220
  Transmission Date: 20210420
  Serious: Yes (Hospitalization, Other)
  Sender: FDA-Public Use
  Company Number: PT-AMGEN-PRTSP2021025170

PATIENT
  Age: 42 Year
  Sex: Female

DRUGS (2)
  1. FILGRASTIM [Suspect]
     Active Substance: FILGRASTIM
     Indication: HAEMATOPOIETIC STEM CELL MOBILISATION
     Dosage: UNK
     Route: 065
     Dates: start: 201810
  2. CYCLOPHOSPHAMIDE. [Concomitant]
     Active Substance: CYCLOPHOSPHAMIDE

REACTIONS (6)
  - Abdominal pain [Recovered/Resolved]
  - Vomiting [Recovered/Resolved]
  - Nausea [Recovered/Resolved]
  - Tremor [Recovered/Resolved]
  - Febrile neutropenia [Recovered/Resolved]
  - Stomatitis [Recovered/Resolved]

NARRATIVE: CASE EVENT DATE: 201810
